FAERS Safety Report 6132817-X (Version None)
Quarter: 2009Q1

REPORT INFORMATION
  Report Type: 
  Country: None (occurrence: None)
  Receive Date: 20090325
  Receipt Date: 20090325
  Transmission Date: 20090719
  Serious: Yes (Other)
  Sender: FDA-Public Use
  Company Number: None

PATIENT
  Age: 25 Year
  Sex: Female

DRUGS (1)
  1. PURSENNID (SENNA GLYCOSIDES) (CA SALTS OF PURIFIED SENNA EXTRACT)) [Suspect]
     Dosage: ORAL

REACTIONS (1)
  - SUICIDE ATTEMPT [None]
